FAERS Safety Report 21794448 (Version 1)
Quarter: 2022Q4

REPORT INFORMATION
  Report Type: Spontaneous
  Country: BE (occurrence: BE)
  Receive Date: 20221229
  Receipt Date: 20221229
  Transmission Date: 20230113
  Serious: Yes (Other)
  Sender: FDA-Public Use
  Company Number: None

PATIENT
  Age: 26 Year
  Sex: Male

DRUGS (1)
  1. CIPROFLOXACIN [Suspect]
     Active Substance: CIPROFLOXACIN
     Indication: Urinary tract infection
     Route: 065

REACTIONS (21)
  - Back pain [Unknown]
  - Dyspnoea [Unknown]
  - Dizziness [Unknown]
  - Abdominal discomfort [Unknown]
  - Bone pain [Unknown]
  - Diarrhoea [Unknown]
  - Monoplegia [Unknown]
  - Dyspepsia [Unknown]
  - Myalgia [Unknown]
  - Head discomfort [Unknown]
  - Hyperhidrosis [Unknown]
  - Headache [Unknown]
  - Paraesthesia [Unknown]
  - Panic attack [Unknown]
  - Decreased appetite [Unknown]
  - Gait disturbance [Unknown]
  - Pyrexia [Recovering/Resolving]
  - Anxiety [Unknown]
  - Agitation [Unknown]
  - Heart rate increased [Unknown]
  - Sleep disorder [Unknown]
